FAERS Safety Report 14237460 (Version 2)
Quarter: 2018Q2

REPORT INFORMATION
  Report Type: Not Available
  Country: US (occurrence: US)
  Receive Date: 20171129
  Receipt Date: 20180430
  Transmission Date: 20180711
  Serious: Yes (Hospitalization)
  Sender: FDA-Public Use
  Company Number: US-NEUROCRINE BIOSCIENCES INC.-2017NBI01270

PATIENT
  Age: 67 Year
  Sex: Male

DRUGS (8)
  1. TEMAZEPAM. [Concomitant]
     Active Substance: TEMAZEPAM
     Dosage: AT NIGHT, AS NEEDED
  2. INGREZZA [Suspect]
     Active Substance: VALBENAZINE
     Indication: TARDIVE DYSKINESIA
     Route: 048
     Dates: start: 20170808, end: 20170814
  3. TRILEPTAL [Concomitant]
     Active Substance: OXCARBAZEPINE
  4. MEMANTINE. [Concomitant]
     Active Substance: MEMANTINE
  5. CYMBALTA [Concomitant]
     Active Substance: DULOXETINE HYDROCHLORIDE
     Dosage: AT BEDTIME
  6. ARICEPT [Concomitant]
     Active Substance: DONEPEZIL HYDROCHLORIDE
     Dosage: AT BEDTIME
  7. INGREZZA [Suspect]
     Active Substance: VALBENAZINE
     Route: 048
     Dates: start: 20170815, end: 20170925
  8. TRAZODONE [Concomitant]
     Active Substance: TRAZODONE HYDROCHLORIDE
     Dosage: ONE OR TWO AS NEEDED AT NIGHT

REACTIONS (3)
  - Myocardial infarction [Unknown]
  - Fall [Unknown]
  - Monoplegia [Unknown]

NARRATIVE: CASE EVENT DATE: 2017
